FAERS Safety Report 15206794 (Version 1)
Quarter: 2018Q3

REPORT INFORMATION
  Report Type: Spontaneous
  Country: GB (occurrence: GB)
  Receive Date: 20180727
  Receipt Date: 20180727
  Transmission Date: 20181010
  Serious: Yes (Disabling, Other)
  Sender: FDA-Public Use
  Company Number: GB-SUN PHARMACEUTICAL INDUSTRIES LTD-2018RR-179740

PATIENT
  Age: 66 Year
  Sex: Male
  Weight: 83 kg

DRUGS (20)
  1. HYDROXOCOBALAMIN [Concomitant]
     Active Substance: HYDROXOCOBALAMIN
     Indication: PRODUCT USED FOR UNKNOWN INDICATION
     Dosage: 1 DF, 3 MONTHLY
     Route: 065
     Dates: start: 20170720
  2. PARACETAMOL [Concomitant]
     Active Substance: ACETAMINOPHEN
     Indication: PRODUCT USED FOR UNKNOWN INDICATION
     Dosage: TAKE 2 4 TIMES/DAY WHEN REQUIRED () ; AS NECESSARY
     Route: 065
     Dates: start: 20180312
  3. MIRTAZAPINE. [Concomitant]
     Active Substance: MIRTAZAPINE
     Indication: PRODUCT USED FOR UNKNOWN INDICATION
     Dosage: 1 DF, DAILY
     Route: 065
     Dates: start: 20180307
  4. BISOPROLOL [Concomitant]
     Active Substance: BISOPROLOL
     Indication: PRODUCT USED FOR UNKNOWN INDICATION
     Dosage: 1 DF, DAILY
     Route: 065
     Dates: start: 20171115
  5. CIPROFLOXACIN. [Suspect]
     Active Substance: CIPROFLOXACIN
     Indication: PRODUCT USED FOR UNKNOWN INDICATION
     Dosage: ()
     Route: 065
     Dates: start: 20180503
  6. SILDENAFIL. [Concomitant]
     Active Substance: SILDENAFIL
     Indication: PRODUCT USED FOR UNKNOWN INDICATION
     Dosage: USE AS DIRECTED ()
     Route: 005
     Dates: start: 20180110
  7. NAPROXEN. [Concomitant]
     Active Substance: NAPROXEN
     Indication: PRODUCT USED FOR UNKNOWN INDICATION
     Dosage: 2 DF, DAILY
     Route: 065
     Dates: start: 20171115
  8. BETAHISTINE [Concomitant]
     Active Substance: BETAHISTINE
     Indication: PRODUCT USED FOR UNKNOWN INDICATION
     Dosage: 3 DF, DAILY
     Route: 065
     Dates: start: 20171115
  9. METFORMIN [Concomitant]
     Active Substance: METFORMIN HYDROCHLORIDE
     Indication: PRODUCT USED FOR UNKNOWN INDICATION
     Dosage: 4 DF, DAILY
     Route: 065
     Dates: start: 20171115
  10. DULOXETINE. [Concomitant]
     Active Substance: DULOXETINE
     Indication: PRODUCT USED FOR UNKNOWN INDICATION
     Dosage: 2 AT NIGHT OR AS DIRECTED ()
     Route: 065
     Dates: start: 20171115
  11. SALBUTAMOL [Concomitant]
     Active Substance: ALBUTEROL
     Indication: PRODUCT USED FOR UNKNOWN INDICATION
     Dosage: 2 PUFFS EVERY 4 TO 6 HOURS AS REQUIRED ; AS NECESSARY
     Route: 065
     Dates: start: 20180419, end: 20180514
  12. GABAPENTIN. [Concomitant]
     Active Substance: GABAPENTIN
     Indication: PRODUCT USED FOR UNKNOWN INDICATION
     Dosage: AS ADVISED? TITRATE UP ()
     Route: 065
     Dates: start: 20171115
  13. TRAMADOL. [Concomitant]
     Active Substance: TRAMADOL
     Indication: PRODUCT USED FOR UNKNOWN INDICATION
     Dosage: 2 DF, DAILY
     Route: 065
     Dates: start: 20180321
  14. PREDNISOLONE. [Concomitant]
     Active Substance: PREDNISOLONE
     Indication: PRODUCT USED FOR UNKNOWN INDICATION
     Dosage: 10MG DAILY? AND AS ADVISED
     Route: 065
     Dates: start: 20171115
  15. FOSTAIR [Concomitant]
     Active Substance: BECLOMETHASONE\FORMOTEROL
     Indication: ASTHMA
     Dosage: 4 DF, DAILY
     Route: 065
     Dates: start: 20180412, end: 20180510
  16. DOXYCYCLINE. [Concomitant]
     Active Substance: DOXYCYCLINE
     Indication: PRODUCT USED FOR UNKNOWN INDICATION
     Dosage: TWO NOW THEN ONE DAILY ()
     Route: 065
     Dates: start: 20180412, end: 20180419
  17. RAMIPRIL. [Concomitant]
     Active Substance: RAMIPRIL
     Indication: HYPERTENSION
     Dosage: 2 DF, DAILY
     Route: 065
     Dates: start: 20180110
  18. ATORVASTATIN [Concomitant]
     Active Substance: ATORVASTATIN
     Indication: PRODUCT USED FOR UNKNOWN INDICATION
     Dosage: ()
     Route: 048
     Dates: start: 20171115
  19. OMEPRAZOLE. [Concomitant]
     Active Substance: OMEPRAZOLE
     Indication: PRODUCT USED FOR UNKNOWN INDICATION
     Dosage: 1 DF, DAILY
     Route: 065
     Dates: start: 20180312
  20. CALCIUM CARBONATE. [Concomitant]
     Active Substance: CALCIUM CARBONATE
     Indication: PRODUCT USED FOR UNKNOWN INDICATION
     Dosage: 2 DF, DAILY
     Route: 065
     Dates: start: 20171115

REACTIONS (6)
  - Fatigue [Not Recovered/Not Resolved]
  - Loss of proprioception [Not Recovered/Not Resolved]
  - Neurotoxicity [Not Recovered/Not Resolved]
  - Myalgia [Not Recovered/Not Resolved]
  - Balance disorder [Not Recovered/Not Resolved]
  - Tremor [Not Recovered/Not Resolved]

NARRATIVE: CASE EVENT DATE: 20180628
